FAERS Safety Report 11392612 (Version 1)
Quarter: 2015Q3

REPORT INFORMATION
  Report Type: Spontaneous
  Country: US (occurrence: None)
  Receive Date: 20150814
  Receipt Date: 20150814
  Transmission Date: 20151125
  Serious: Yes (Hospitalization)
  Sender: FDA-Public Use
  Company Number: 3004548779-2015-00002

PATIENT
  Sex: Female
  Weight: 68.04 kg

DRUGS (1)
  1. ADSOL RED CELL PRESERVATION SOLUTION SYSTEM IN PLASTIC CONTAINER (PL 146 PLASTIC) [Suspect]
     Active Substance: ADENINE\ANHYDROUS CITRIC ACID\DEXTROSE MONOHYDRATE\MANNITOL\SODIUM CHLORIDE\SODIUM PHOSPHATE, MONOBASIC, MONOHYDRATE\TRISODIUM CITRATE DIHYDRATE
     Indication: BLOOD DONOR

REACTIONS (3)
  - Haemorrhage [None]
  - Malaise [None]
  - Wrong technique in product usage process [None]

NARRATIVE: CASE EVENT DATE: 20150713
